FAERS Safety Report 5788181-9 (Version None)
Quarter: 2008Q2

REPORT INFORMATION
  Report Type: 
  Country: None (occurrence: None)
  Receive Date: 20080623
  Receipt Date: 20080612
  Transmission Date: 20081010
  Serious: Yes (Hospitalization)
  Sender: FDA-Public Use
  Company Number: 230285J08USA

PATIENT
  Age: 45 Year
  Sex: Female
  Weight: 86.637 kg

DRUGS (7)
  1. REBIF [Suspect]
     Indication: MULTIPLE SCLEROSIS
     Dosage: 44 MCG, 3 IN 1 WEEKS, SUBCUTANEOUS
     Route: 058
     Dates: start: 20030101
  2. NEURONTIN [Concomitant]
  3. EFFEXOR XR [Concomitant]
  4. TRANXENE [Concomitant]
  5. DESYREL [Concomitant]
  6. LEVOTHYROXINE SODIUM [Concomitant]
  7. IBUPROFEN [Concomitant]

REACTIONS (4)
  - CERVICAL SPINAL STENOSIS [None]
  - HYPOAESTHESIA [None]
  - INTERVERTEBRAL DISC DEGENERATION [None]
  - PAIN [None]
